FAERS Safety Report 21937878 (Version 1)
Quarter: 2023Q1

REPORT INFORMATION
  Report Type: Spontaneous
  Country: US (occurrence: None)
  Receive Date: 20230201
  Receipt Date: 20230201
  Transmission Date: 20230417
  Serious: No
  Sender: FDA-Public Use
  Company Number: None

PATIENT
  Age: 40 Year
  Sex: Male
  Weight: 62.55 kg

DRUGS (1)
  1. CABOTEGRAVIR [Suspect]
     Active Substance: CABOTEGRAVIR
     Indication: Prophylaxis against HIV infection
     Dosage: OTHER FREQUENCY : EVERY OTHER MONTH;?
     Route: 058
     Dates: start: 20221219, end: 20230131

REACTIONS (1)
  - Insomnia [None]

NARRATIVE: CASE EVENT DATE: 20230131
